FAERS Safety Report 7759043-2 (Version None)
Quarter: 2011Q3

REPORT INFORMATION
  Report Type: 
  Country: None (occurrence: None)
  Receive Date: 20110919
  Receipt Date: 20110914
  Transmission Date: 20111222
  Serious: Yes (Other)
  Sender: FDA-Public Use
  Company Number: US-BRISTOL-MYERS SQUIBB COMPANY-16038655

PATIENT
  Age: 64 Year
  Sex: Male

DRUGS (13)
  1. CELEXA [Concomitant]
     Route: 048
  2. ATACAND [Concomitant]
     Route: 048
  3. IMODIUM [Concomitant]
     Route: 048
  4. NORVASC [Concomitant]
     Route: 048
  5. ASACOL [Concomitant]
     Route: 048
  6. INSULIN [Concomitant]
  7. ASPIRIN [Concomitant]
     Route: 048
  8. TOPRAL [Concomitant]
     Dosage: XL.
     Route: 048
  9. UROXATRAL [Concomitant]
  10. SPRYCEL [Suspect]
     Indication: CHRONIC MYELOID LEUKAEMIA
     Dosage: RESTARTED MAR2011 OR APR2011.
     Route: 048
     Dates: start: 20110401
  11. ADVAIR DISKUS 100/50 [Concomitant]
  12. PRELONE [Concomitant]
  13. FINASTERIDE [Concomitant]
     Route: 048

REACTIONS (7)
  - DIARRHOEA [None]
  - VOMITING [None]
  - HYPERCHLORHYDRIA [None]
  - ABDOMINAL PAIN [None]
  - ASTHENIA [None]
  - THROAT IRRITATION [None]
  - DYSGEUSIA [None]
